FAERS Safety Report 10217820 (Version 1)
Quarter: 2014Q2

REPORT INFORMATION
  Report Type: Report from Study
  Country: CA (occurrence: CA)
  Receive Date: 20140604
  Receipt Date: 20140604
  Transmission Date: 20141212
  Serious: Yes (Death, Hospitalization)
  Sender: FDA-Public Use
  Company Number: CA-JNJFOC-20140520144

PATIENT
  Sex: Male

DRUGS (2)
  1. TYLENOL ES EZ TAB 100S + 30S [Suspect]
     Indication: PRODUCT USED FOR UNKNOWN INDICATION
     Route: 048
     Dates: start: 199911, end: 19991129
  2. ETHANOL [Suspect]
     Indication: PRODUCT USED FOR UNKNOWN INDICATION
     Route: 048

REACTIONS (8)
  - Toxicity to various agents [Fatal]
  - Alcoholic pancreatitis [Fatal]
  - Hepatitis alcoholic [Fatal]
  - Alcohol abuse [Fatal]
  - Hepatic encephalopathy [None]
  - Brain oedema [None]
  - Cardiac arrest [None]
  - Blood creatinine increased [None]
